FAERS Safety Report 7374740-9 (Version None)
Quarter: 2011Q1

REPORT INFORMATION
  Report Type: 
  Country: None (occurrence: None)
  Receive Date: 20110325
  Receipt Date: 20101210
  Transmission Date: 20110831
  Serious: No
  Sender: FDA-Public Use
  Company Number: US-MYLANLABS-2010S1017552

PATIENT
  Age: 59 Year
  Sex: Female

DRUGS (7)
  1. LANOXIN [Concomitant]
     Indication: TACHYCARDIA
     Route: 048
  2. FENTANYL-100 [Suspect]
     Indication: PAIN
     Dosage: CHANGED Q72H
     Route: 062
     Dates: start: 20100921, end: 20100921
  3. VERAPAMIL [Concomitant]
     Indication: TACHYCARDIA
     Dosage: HIGH BLOOD PRESSURE
     Route: 048
  4. WELLBUTRIN [Concomitant]
     Indication: DEPRESSION
     Route: 048
  5. FENTANYL-100 [Suspect]
     Indication: NECK PAIN
     Dosage: CHANGED Q72H
     Route: 062
     Dates: start: 20100921, end: 20100921
  6. XANAX [Concomitant]
     Indication: ANXIETY
     Route: 048
  7. FENTANYL-100 [Suspect]
     Indication: ARTHRITIS
     Dosage: CHANGED Q72H
     Route: 062
     Dates: start: 20100921, end: 20100921

REACTIONS (8)
  - HYPOAESTHESIA [None]
  - TREMOR [None]
  - RASH [None]
  - DYSPNOEA [None]
  - CHEST DISCOMFORT [None]
  - TACHYCARDIA [None]
  - HEADACHE [None]
  - FEELING JITTERY [None]
